FAERS Safety Report 8418618-8 (Version None)
Quarter: 2012Q2

REPORT INFORMATION
  Report Type: 
  Country: None (occurrence: None)
  Receive Date: 20120607
  Receipt Date: 20120529
  Transmission Date: 20120825
  Serious: Yes (Other)
  Sender: FDA-Public Use
  Company Number: FR-JNJFOC-20120520380

PATIENT
  Age: 79 Year
  Sex: Male

DRUGS (3)
  1. GALANTAMINE HYDROBROMIDE [Suspect]
     Indication: DEMENTIA ALZHEIMER'S TYPE
     Dosage: ALMOST 3 YEARS BEFORE REPORT
     Route: 048
  2. FENOFIBRATE [Concomitant]
     Dosage: INTRODUCED MORE THAN 3 YEARS BEFORE REPORT
     Route: 065
  3. ZOPICLONE [Concomitant]
     Dosage: INTRODUCED MORE THAN 3 YEARS BEFORE REPORT
     Route: 065

REACTIONS (4)
  - NAIL DISCOLOURATION [None]
  - DERMATITIS ALLERGIC [None]
  - PRURITUS [None]
  - NAIL DISORDER [None]
